FAERS Safety Report 8790833 (Version 2)
Quarter: 2013Q1

REPORT INFORMATION
  Report Type: Spontaneous
  Country: GB (occurrence: None)
  Receive Date: 20120910
  Receipt Date: 20130118
  Transmission Date: 20140127
  Serious: Yes (Other)
  Sender: FDA-Public Use
  Company Number: 2012217164

PATIENT
  Sex: Female

DRUGS (3)
  1. DALTEPARIN SODIUM (DALTEPARIN SODIUM) UNKNOWN [Suspect]
  2. ALENDRONATE ACID (ALENDRONATE ACID) [Suspect]
     Dates: start: 201108
  3. LETROZOLE [Suspect]

REACTIONS (10)
  - Drug interaction [None]
  - Back pain [None]
  - Osteoporosis [None]
  - Spinal compression fracture [None]
  - Migraine [None]
  - Monoplegia [None]
  - Aphasia [None]
  - Bone pain [None]
  - Arthralgia [None]
  - Myalgia [None]
